FAERS Safety Report 8334146-2 (Version None)
Quarter: 2012Q2

REPORT INFORMATION
  Report Type: 
  Country: None (occurrence: None)
  Receive Date: 20120503
  Receipt Date: 20120426
  Transmission Date: 20120825
  Serious: Yes (Hospitalization, Other)
  Sender: FDA-Public Use
  Company Number: US-ROXANE LABORATORIES, INC.-2012-RO-01146RO

PATIENT
  Age: 89 Year
  Sex: Female

DRUGS (9)
  1. HYDROCHLOROTHIAZIDE [Concomitant]
  2. PREDNISONE TAB [Suspect]
     Indication: PEMPHIGOID
  3. ATENOLOL [Concomitant]
  4. AZATHIOPRINE [Suspect]
     Dosage: 50 MG
  5. CLOBETASOL PROPIONATE [Suspect]
     Indication: PEMPHIGOID
     Route: 061
  6. PREDNISONE TAB [Suspect]
  7. METFORMIN HCL [Concomitant]
  8. PIOGLITAZONE [Concomitant]
  9. LOVASTATIN [Concomitant]

REACTIONS (4)
  - INSOMNIA [None]
  - HYPOKALAEMIA [None]
  - CUSHINGOID [None]
  - ACUTE FEBRILE NEUTROPHILIC DERMATOSIS [None]
